FAERS Safety Report 13002334 (Version 1)
Quarter: 2016Q4

REPORT INFORMATION
  Report Type: Spontaneous
  Country: US (occurrence: US)
  Receive Date: 20161206
  Receipt Date: 20161206
  Transmission Date: 20170207
  Serious: No
  Sender: FDA-Public Use
  Company Number: US-BAUSCH-BL-2016-024000

PATIENT
  Age: 16 Year
  Sex: Male

DRUGS (2)
  1. ACANYA [Suspect]
     Active Substance: BENZOYL PEROXIDE\CLINDAMYCIN PHOSPHATE
     Indication: ACNE
     Route: 061
  2. DOXYCYCLINE. [Suspect]
     Active Substance: DOXYCYCLINE
     Indication: ACNE
     Route: 048

REACTIONS (1)
  - Pruritus [Not Recovered/Not Resolved]
